FAERS Safety Report 4991568-5 (Version None)
Quarter: 2006Q2

REPORT INFORMATION
  Report Type: 
  Country: None (occurrence: None)
  Receive Date: 20060502
  Receipt Date: 20060419
  Transmission Date: 20061013
  Serious: Yes (Other)
  Sender: FDA-Public Use
  Company Number: 2006-04-1618

PATIENT
  Age: 46 Year
  Sex: Male

DRUGS (5)
  1. PEG-INTRON [Suspect]
     Indication: HEPATITIS C
     Dates: start: 20060413
  2. RIBASPHERE [Suspect]
     Indication: HEPATITIS C
     Dosage: ORAL
     Route: 048
     Dates: start: 20060413
  3. DEPAKOTE [Concomitant]
  4. MIRTAZAPINE [Concomitant]
  5. HYDROXYZINE [Concomitant]

REACTIONS (3)
  - HYPERHIDROSIS [None]
  - IRRITABILITY [None]
  - TUNNEL VISION [None]
